FAERS Safety Report 20936163 (Version 1)
Quarter: 2022Q2

REPORT INFORMATION
  Report Type: Report from Study
  Country: AU (occurrence: AU)
  Receive Date: 20220609
  Receipt Date: 20220609
  Transmission Date: 20220721
  Serious: Yes (Death, Other)
  Sender: FDA-Public Use
  Company Number: AU-SUN PHARMACEUTICAL INDUSTRIES LTD-2022RR-340102

PATIENT
  Age: 54 Year
  Sex: Male

DRUGS (4)
  1. MORPHINE [Suspect]
     Active Substance: MORPHINE
     Indication: Ankle operation
     Dosage: 10 MILLIGRAM, UNK
     Route: 058
  2. MORPHINE [Suspect]
     Active Substance: MORPHINE
     Dosage: 10 MILLIGRAM, UNK
     Route: 030
  3. MORPHINE [Suspect]
     Active Substance: MORPHINE
     Dosage: 34 MILLIGRAM, UNK
     Route: 058
  4. PROPOXYPHENE [Suspect]
     Active Substance: PROPOXYPHENE
     Indication: Ankle operation
     Dosage: UNK
     Route: 065

REACTIONS (1)
  - Toxicity to various agents [Fatal]
